FAERS Safety Report 22184247 (Version 2)
Quarter: 2023Q2

REPORT INFORMATION
  Report Type: Spontaneous
  Country: US (occurrence: US)
  Receive Date: 20230407
  Receipt Date: 20230426
  Transmission Date: 20230722
  Serious: No
  Sender: FDA-Public Use
  Company Number: None

PATIENT
  Sex: Male

DRUGS (5)
  1. CHOLESTYRAMINE LIGHT [Suspect]
     Active Substance: CHOLESTYRAMINE
     Indication: Diarrhoea
     Route: 065
     Dates: start: 2023
  2. BENAZEPRIL [Concomitant]
     Active Substance: BENAZEPRIL HYDROCHLORIDE
     Indication: Hypertension
     Route: 065
  3. AMLODIPINE [Concomitant]
     Active Substance: AMLODIPINE BESYLATE
     Indication: Hypertension
     Route: 065
  4. POTASSIUM CHLORIDE [Concomitant]
     Active Substance: POTASSIUM CHLORIDE
     Indication: Hypertension
     Route: 065
  5. ATORVASTATIN CALCIUM [Concomitant]
     Active Substance: ATORVASTATIN CALCIUM
     Indication: Hypertension
     Route: 065

REACTIONS (4)
  - Drug ineffective for unapproved indication [Unknown]
  - Product solubility abnormal [Unknown]
  - Inappropriate schedule of product administration [Unknown]
  - Product substitution issue [Unknown]
